FAERS Safety Report 9840681 (Version 3)
Quarter: 2014Q1

REPORT INFORMATION
  Report Type: Report from Study
  Country: ES (occurrence: ES)
  Receive Date: 20140124
  Receipt Date: 20140226
  Transmission Date: 20141002
  Serious: Yes (Other)
  Sender: FDA-Public Use
  Company Number: ES-MILLENNIUM PHARMACEUTICALS, INC.-2014JNJ000132

PATIENT
  Sex: 0

DRUGS (4)
  1. VELCADE [Suspect]
     Indication: PLASMA CELL MYELOMA
     Dosage: 1.9 MG, UNK
     Route: 042
     Dates: start: 20120709, end: 20121203
  2. BENDAMUSTINE [Suspect]
     Indication: PLASMA CELL MYELOMA
     Dosage: 171 MG, UNK
     Route: 042
     Dates: start: 20120709, end: 20121119
  3. PREDNISONE [Suspect]
     Indication: PLASMA CELL MYELOMA
     Dosage: 114 MG, UNK
     Route: 048
     Dates: start: 20120709, end: 20121115
  4. GRANULOCYTE COLONY-STIMULATING FACTOR NOS [Concomitant]
     Dosage: 13.7 UNK, UNK
     Dates: start: 20121223, end: 20130102

REACTIONS (1)
  - Blood stem cell harvest failure [Recovered/Resolved]
